FAERS Safety Report 5201921-2 (Version None)
Quarter: 2007Q1

REPORT INFORMATION
  Report Type: 
  Country: None (occurrence: None)
  Receive Date: 20070104
  Receipt Date: 20061226
  Transmission Date: 20070707
  Serious: Yes (Other)
  Sender: FDA-Public Use
  Company Number: DEWYE952127DEC06

PATIENT
  Age: 34 Year
  Sex: Female

DRUGS (1)
  1. VENLAFAXINE HCL [Suspect]

REACTIONS (2)
  - GASTROINTESTINAL CARCINOMA [None]
  - PRESYNCOPE [None]
